FAERS Safety Report 5487231-7 (Version None)
Quarter: 2007Q3

REPORT INFORMATION
  Report Type: 
  Country: None (occurrence: None)
  Receive Date: 20070925
  Receipt Date: 20070620
  Transmission Date: 20080115
  Serious: No
  Sender: FDA-Public Use
  Company Number: 2007US001443

PATIENT
  Age: 76 Year
  Sex: Female

DRUGS (7)
  1. VESICARE [Suspect]
     Indication: HYPERTONIC BLADDER
     Dosage: 5 MG, UID/QD, ORAL 2.5 MG, UID/QD, ORAL
     Route: 048
     Dates: start: 20070401, end: 20070524
  2. VESICARE [Suspect]
     Indication: HYPERTONIC BLADDER
     Dosage: 5 MG, UID/QD, ORAL 2.5 MG, UID/QD, ORAL
     Route: 048
     Dates: start: 20070525, end: 20070601
  3. HYDROCHLOROTHIAZIDE [Concomitant]
  4. GLUCOSAMINE (GLUCOSAMINE) [Concomitant]
  5. MULTIVITAMIN [Concomitant]
  6. CALCIUM (ASCORBIC ACID) [Concomitant]
  7. HORMONES AND RELATED AGENTS [Concomitant]

REACTIONS (1)
  - RASH [None]
